FAERS Safety Report 4928696-6 (Version None)
Quarter: 2006Q1

REPORT INFORMATION
  Report Type: 
  Country: None (occurrence: None)
  Receive Date: 20060301
  Receipt Date: 20060220
  Transmission Date: 20060701
  Serious: Yes (Other)
  Sender: FDA-Public Use
  Company Number: GB-ABBOTT-06P-167-0325611-00

PATIENT
  Age: 54 Year
  Sex: Female
  Weight: 81 kg

DRUGS (6)
  1. REDUCTIL 10MG [Suspect]
     Indication: WEIGHT DECREASED
     Route: 048
     Dates: start: 20051114
  2. ATORVASTATIN CALCIUM [Concomitant]
     Indication: BLOOD CHOLESTEROL INCREASED
     Route: 048
  3. ASPIRIN [Concomitant]
     Indication: CARDIOVASCULAR DISORDER
     Route: 048
  4. ISOSORBIDE MONONITRATE [Concomitant]
     Indication: CARDIOVASCULAR DISORDER
     Route: 048
  5. PERINDOPRIL [Concomitant]
     Indication: CARDIOVASCULAR DISORDER
     Route: 048
  6. BENDROFLUMETHIAZIDE [Concomitant]
     Indication: CARDIOVASCULAR DISORDER
     Route: 048

REACTIONS (1)
  - ASTHMA [None]
